FAERS Safety Report 4647097-1 (Version None)
Quarter: 2005Q2

REPORT INFORMATION
  Report Type: 
  Country: None (occurrence: None)
  Receive Date: 20050331
  Receipt Date: 20050128
  Transmission Date: 20051028
  Serious: No
  Sender: FDA-Public Use
  Company Number: 05P-163-0288463-00

PATIENT
  Age: 69 Year
  Sex: Female
  Weight: 64.4108 kg

DRUGS (6)
  1. HUMIRA [Suspect]
     Indication: RHEUMATOID ARTHRITIS
     Dosage: 40 MG, 1 IN 2 WK, SUBCUTANEOUS
     Route: 058
     Dates: start: 20040401, end: 20050101
  2. AZATHIOPRINE [Concomitant]
  3. BUCINDOLOL HYDROCHLORIDE [Concomitant]
  4. LOTREL [Concomitant]
  5. ROSIGLITAZONE MALEATE [Concomitant]
  6. ZOCOR [Concomitant]

REACTIONS (7)
  - ASTHENIA [None]
  - HYPERHIDROSIS [None]
  - INFLUENZA [None]
  - INJECTION SITE PRURITUS [None]
  - LYMPHADENOPATHY [None]
  - PHARYNGITIS [None]
  - SINUSITIS [None]
